FAERS Safety Report 17088563 (Version 4)
Quarter: 2020Q1

REPORT INFORMATION
  Report Type: Report from Study
  Country: US (occurrence: US)
  Receive Date: 20191128
  Receipt Date: 20200218
  Transmission Date: 20200409
  Serious: Yes (Other)
  Sender: FDA-Public Use
  Company Number: NVSC2019US051058

PATIENT
  Age: 48 Year
  Sex: Female

DRUGS (1)
  1. GILENYA [Suspect]
     Active Substance: FINGOLIMOD HYDROCHLORIDE
     Indication: PSORIASIS
     Dosage: 0.5 MG, QD
     Route: 048
     Dates: start: 2017, end: 20190826

REACTIONS (5)
  - Macular oedema [Recovered/Resolved]
  - Product use in unapproved indication [Unknown]
  - Erythema nodosum [Recovering/Resolving]
  - Rash [Unknown]
  - Visual impairment [Recovered/Resolved]

NARRATIVE: CASE EVENT DATE: 20190912
